FAERS Safety Report 4718478-2 (Version None)
Quarter: 2005Q3

REPORT INFORMATION
  Report Type: 
  Country: None (occurrence: None)
  Receive Date: 20050720
  Receipt Date: 20050527
  Transmission Date: 20060218
  Serious: Yes (Hospitalization, Other)
  Sender: FDA-Public Use
  Company Number: US-BRISTOL-MYERS SQUIBB COMPANY-12987590

PATIENT
  Age: 71 Year
  Sex: Male

DRUGS (9)
  1. CETUXIMAB [Suspect]
     Indication: NON-SMALL CELL LUNG CANCER
     Dosage: INITIAL TX DATE: 10-FEB-05,PATIENT COMPLETED CYCLE 5 DAY 15-TOTAL OF 19 CETUXIMAB INFUSIONS-
     Route: 042
     Dates: start: 20050519, end: 20050519
  2. CARBOPLATIN [Suspect]
     Indication: NON-SMALL CELL LUNG CANCER
     Dosage: INITIAL TX DATE: 10-FEB-05.  TOTAL DAILY DOSE: AUC 6-COMPLETED CYCLE 5 DAY 15-TOTAL OF 4 INFUSIONS
     Route: 042
     Dates: start: 20050414, end: 20050414
  3. LISINOPRIL [Concomitant]
     Indication: HYPERTENSION
     Route: 048
     Dates: start: 19990101
  4. HYDROCHLOROTHIAZIDE [Concomitant]
     Route: 048
     Dates: start: 19990101
  5. GLYBURIDE [Concomitant]
     Indication: DIABETES MELLITUS NON-INSULIN-DEPENDENT
     Route: 048
     Dates: start: 19990101
  6. MAGNESIUM OXIDE [Concomitant]
     Indication: HYPOMAGNESAEMIA
     Dosage: INITIALLY ON 400 MG QD SINCE 26-JAN-05/INCREASED TO BID ON 28-APR-05.
     Route: 048
     Dates: start: 20050428
  7. AVANDIA [Concomitant]
     Indication: DIABETES MELLITUS NON-INSULIN-DEPENDENT
     Route: 048
     Dates: start: 19990101
  8. COMPAZINE [Concomitant]
     Indication: VOMITING
     Dosage: EVERY 4-6 HRS PRN
     Route: 048
  9. TYLENOL [Concomitant]
     Route: 048
     Dates: start: 20050204, end: 20050205

REACTIONS (3)
  - BLOOD MAGNESIUM DECREASED [None]
  - MALIGNANT NEOPLASM PROGRESSION [None]
  - VENTRICULAR ARRHYTHMIA [None]
